FAERS Safety Report 22199083 (Version 1)
Quarter: 2023Q2

REPORT INFORMATION
  Report Type: Spontaneous
  Country: US (occurrence: None)
  Receive Date: 20230411
  Receipt Date: 20230411
  Transmission Date: 20230721
  Serious: No
  Sender: FDA-Public Use
  Company Number: 2023A063728

PATIENT

DRUGS (1)
  1. PULMICORT FLEXHALER [Suspect]
     Active Substance: BUDESONIDE
     Route: 055

REACTIONS (11)
  - Tachycardia [Unknown]
  - Wheezing [Unknown]
  - Product dose omission issue [Unknown]
  - Candida infection [Unknown]
  - Feeding disorder [Unknown]
  - Dysphagia [Unknown]
  - Blood glucose increased [Unknown]
  - Decreased appetite [Unknown]
  - Sneezing [Unknown]
  - Weight decreased [Unknown]
  - Device malfunction [Unknown]
